FAERS Safety Report 8554316-8 (Version None)
Quarter: 2012Q3

REPORT INFORMATION
  Report Type: 
  Country: None (occurrence: None)
  Receive Date: 20120731
  Receipt Date: 20120723
  Transmission Date: 20120928
  Serious: Yes (Death, Hospitalization)
  Sender: FDA-Public Use
  Company Number: JP-ROCHE-1093378

PATIENT
  Sex: Female

DRUGS (31)
  1. ACTEMRA [Suspect]
     Indication: RHEUMATOID ARTHRITIS
     Route: 041
     Dates: start: 20090629, end: 20090629
  2. ACTEMRA [Suspect]
     Route: 041
     Dates: start: 20090827, end: 20090827
  3. ACTEMRA [Suspect]
     Route: 041
     Dates: start: 20100517, end: 20100517
  4. PREDNISOLONE [Suspect]
     Dosage: FORM:POR
     Route: 048
     Dates: start: 20090420, end: 20090826
  5. PREDNISOLONE [Suspect]
     Dosage: FORM:POR
     Route: 048
     Dates: start: 20090924
  6. DILTIAZEM HCL [Concomitant]
     Indication: ANGINA PECTORIS
     Route: 048
  7. ACTEMRA [Suspect]
     Route: 041
     Dates: start: 20090730, end: 20090730
  8. RABEPRAZOLE SODIUM [Concomitant]
     Indication: GASTRITIS
     Route: 048
     Dates: end: 20111119
  9. ACTONEL [Concomitant]
     Indication: OSTEOPOROSIS
     Route: 048
     Dates: start: 20101101, end: 20111120
  10. ACTEMRA [Suspect]
     Route: 041
     Dates: start: 20100323, end: 20100323
  11. ACTEMRA [Suspect]
     Route: 041
     Dates: start: 20100614, end: 20100614
  12. ACTEMRA [Suspect]
     Route: 041
     Dates: start: 20091022, end: 20091022
  13. ACTEMRA [Suspect]
     Route: 041
     Dates: start: 20091119, end: 20091119
  14. ACTEMRA [Suspect]
     Route: 041
     Dates: start: 20100712, end: 20110823
  15. ONEALFA [Concomitant]
     Indication: OSTEOPOROSIS
     Route: 048
     Dates: end: 20111120
  16. CLARITHROMYCIN [Concomitant]
     Indication: PROPHYLAXIS
     Route: 048
     Dates: start: 20090702, end: 20111120
  17. ACTEMRA [Suspect]
     Route: 041
     Dates: start: 20100419, end: 20100419
  18. EVISTA [Concomitant]
     Indication: OSTEOPOROSIS
     Route: 048
     Dates: end: 20090618
  19. HICEE [Concomitant]
     Route: 048
     Dates: end: 20111120
  20. ETODOLAC [Concomitant]
     Indication: RHEUMATOID ARTHRITIS
     Dosage: DRUG NAME PROVIDED AS RAIPECK
     Route: 048
  21. ACTEMRA [Suspect]
     Route: 041
     Dates: start: 20090924, end: 20090924
  22. ACTEMRA [Suspect]
     Route: 041
     Dates: start: 20091217, end: 20091217
  23. ACTEMRA [Suspect]
     Route: 041
     Dates: start: 20110921, end: 20110921
  24. PREDNISOLONE [Suspect]
     Indication: RHEUMATOID ARTHRITIS
     Dosage: FORM:POR
     Route: 048
     Dates: end: 20090419
  25. PREDNISOLONE [Suspect]
     Dosage: FORM:POR
     Route: 048
     Dates: start: 20090827, end: 20090923
  26. PREDNISOLONE [Suspect]
     Dosage: FORM:POR
     Route: 048
     Dates: end: 20111120
  27. ACTEMRA [Suspect]
     Route: 041
     Dates: start: 20111020, end: 20111020
  28. VITAMIN B12 [Concomitant]
     Indication: NEUROPATHY PERIPHERAL
     Route: 048
     Dates: end: 20111120
  29. VOLTAREN [Concomitant]
     Indication: RHEUMATOID ARTHRITIS
     Dosage: PROPER QUANTITY, FORM:JEL
     Route: 061
     Dates: start: 20090707, end: 20090826
  30. ACTEMRA [Suspect]
     Route: 041
     Dates: start: 20100114, end: 20100215
  31. LENDORMIN D [Concomitant]
     Indication: INSOMNIA
     Route: 048
     Dates: end: 20111120

REACTIONS (5)
  - LUMBAR SPINAL STENOSIS [None]
  - ARTHRALGIA [None]
  - DISSEMINATED INTRAVASCULAR COAGULATION [None]
  - SPINAL CORD INJURY [None]
  - CEREBRAL HAEMORRHAGE [None]
